FAERS Safety Report 6676261-5 (Version None)
Quarter: 2010Q2

REPORT INFORMATION
  Report Type: 
  Country: None (occurrence: None)
  Receive Date: 20100408
  Receipt Date: 20100331
  Transmission Date: 20101027
  Serious: Yes (Life-Threatening, Hospitalization)
  Sender: FDA-Public Use
  Company Number: 020718968A

PATIENT
  Age: 27 Year
  Sex: Female

DRUGS (2)
  1. ULTRA PALMOLIVE ANTIBACTERIAL HAND SOAP ORANGE CONC [Suspect]
     Dosage: ONCE / TOPICAL
     Route: 061
     Dates: start: 20100310
  2. ALBUTEROL SULATE [Concomitant]

REACTIONS (5)
  - ANAPHYLACTIC SHOCK [None]
  - ASTHMA [None]
  - DRUG INEFFECTIVE [None]
  - ERYTHEMA [None]
  - EYE PRURITUS [None]
